FAERS Safety Report 5615165-3 (Version None)
Quarter: 2008Q1

REPORT INFORMATION
  Report Type: 
  Country: None (occurrence: None)
  Receive Date: 20080206
  Receipt Date: 20071009
  Transmission Date: 20080703
  Serious: No
  Sender: FDA-Public Use
  Company Number: A0686649A

PATIENT
  Age: 62 Year
  Sex: Female

DRUGS (5)
  1. ARIXTRA [Suspect]
     Indication: DEEP VEIN THROMBOSIS
     Dosage: 1INJ PER DAY
     Route: 058
     Dates: start: 20070925, end: 20070926
  2. GABAPENTIN [Concomitant]
  3. NORVASC [Concomitant]
  4. ARTHROTEC [Concomitant]
  5. THYROID TAB [Concomitant]

REACTIONS (3)
  - PRURITUS [None]
  - SWELLING FACE [None]
  - URTICARIA [None]
